FAERS Safety Report 9958241 (Version 1)
Quarter: 2014Q1

REPORT INFORMATION
  Report Type: Report from Study
  Country: US (occurrence: US)
  Receive Date: 20140304
  Receipt Date: 20140304
  Transmission Date: 20141002
  Serious: No
  Sender: FDA-Public Use
  Company Number: US-ABBVIE-13P-163-1095530-00

PATIENT
  Age: 55 Year
  Sex: Female

DRUGS (21)
  1. HUMIRA [Suspect]
     Indication: RHEUMATOID ARTHRITIS
     Dates: start: 20130409
  2. ATENOLOL [Concomitant]
     Indication: BLOOD PRESSURE
     Dosage: 100MG DAILY
  3. LIPITOR [Concomitant]
     Indication: BLOOD CHOLESTEROL INCREASED
     Dosage: 40MG DAILY
  4. METFORMIN [Concomitant]
     Indication: DIABETES MELLITUS
  5. CLONAZEPAM [Concomitant]
     Indication: MUSCLE SPASMS
  6. CLONAZEPAM [Concomitant]
     Indication: BACK INJURY
  7. CLONAZEPAM [Concomitant]
     Indication: JOINT INJURY
  8. BENAZEPRIL [Concomitant]
     Indication: HYPERTENSION
     Dosage: 40MG DAILY
  9. CARVEDILOL [Concomitant]
     Indication: CARDIOVASCULAR EVENT PROPHYLAXIS
  10. FISH OIL [Concomitant]
     Indication: MUSCLE SPASMS
  11. FISH OIL [Concomitant]
     Indication: BACK INJURY
  12. FISH OIL [Concomitant]
     Indication: JOINT INJURY
  13. VITAMIN C [Concomitant]
     Indication: MUSCLE SPASMS
  14. VITAMIN C [Concomitant]
     Indication: BACK INJURY
  15. VITAMIN C [Concomitant]
     Indication: JOINT INJURY
  16. CALCIUM [Concomitant]
     Indication: MUSCLE SPASMS
  17. CALCIUM [Concomitant]
     Indication: BACK INJURY
  18. CALCIUM [Concomitant]
     Indication: JOINT INJURY
  19. IRON [Concomitant]
     Indication: MUSCLE SPASMS
  20. IRON [Concomitant]
     Indication: BACK INJURY
  21. IRON [Concomitant]
     Indication: JOINT INJURY

REACTIONS (1)
  - Urticaria [Recovering/Resolving]
